FAERS Safety Report 19956344 (Version 2)
Quarter: 2021Q4

REPORT INFORMATION
  Report Type: Spontaneous
  Country: US (occurrence: US)
  Receive Date: 20211014
  Receipt Date: 20211022
  Transmission Date: 20220303
  Serious: Yes (Other)
  Sender: FDA-Public Use
  Company Number: US-TEVA-2021-US-1963840

PATIENT
  Age: 44 Year
  Sex: Male

DRUGS (5)
  1. LEVOFLOXACIN [Suspect]
     Active Substance: LEVOFLOXACIN
     Indication: Endocarditis bacterial
     Dosage: 750 MILLIGRAM DAILY;
     Route: 048
  2. LEVOFLOXACIN [Suspect]
     Active Substance: LEVOFLOXACIN
     Indication: Legionella infection
  3. RIFAMPIN [Interacting]
     Active Substance: RIFAMPIN
     Indication: Endocarditis bacterial
     Dosage: 600 MILLIGRAM DAILY;
     Route: 048
  4. RIFAMPIN [Interacting]
     Active Substance: RIFAMPIN
     Indication: Legionella infection
  5. WARFARIN [Interacting]
     Active Substance: WARFARIN
     Indication: Product used for unknown indication
     Route: 065

REACTIONS (2)
  - Electrocardiogram QT prolonged [Unknown]
  - Drug interaction [Unknown]
